FAERS Safety Report 7469062-1 (Version None)
Quarter: 2011Q2

REPORT INFORMATION
  Report Type: 
  Country: None (occurrence: None)
  Receive Date: 20110429
  Receipt Date: 20110414
  Transmission Date: 20111010
  Serious: Yes (Other)
  Sender: FDA-Public Use
  Company Number: 2011IL0106

PATIENT
  Age: 2 Year
  Sex: Female

DRUGS (1)
  1. NITISINONE (NITISINONE) [Suspect]
     Indication: TYROSINAEMIA
     Dosage: 1 MG/KG (1 MG/KG, 1 IN 1 D)

REACTIONS (7)
  - ASCITES [None]
  - MALNUTRITION [None]
  - HEPATIC CIRRHOSIS [None]
  - HEPATIC LESION [None]
  - ALANINE AMINOTRANSFERASE INCREASED [None]
  - RESPIRATORY DISTRESS [None]
  - HEPATIC STEATOSIS [None]
